FAERS Safety Report 6876401-9 (Version None)
Quarter: 2010Q3

REPORT INFORMATION
  Report Type: 
  Country: None (occurrence: None)
  Receive Date: 20100727
  Receipt Date: 20070621
  Transmission Date: 20110219
  Serious: Yes (Other)
  Sender: FDA-Public Use
  Company Number: US-PFIZER INC-2007038628

PATIENT
  Sex: Female
  Weight: 108.9 kg

DRUGS (2)
  1. CELEBREX [Suspect]
     Indication: ARTHRITIS
     Route: 048
     Dates: start: 20061016, end: 20061121
  2. ATENOLOL [Concomitant]

REACTIONS (2)
  - HERNIA [None]
  - LIVER FUNCTION TEST ABNORMAL [None]
